FAERS Safety Report 9278998 (Version 1)
Quarter: 2013Q2

REPORT INFORMATION
  Report Type: Spontaneous
  Country: US (occurrence: US)
  Receive Date: 20130508
  Receipt Date: 20130508
  Transmission Date: 20140414
  Serious: Yes (Hospitalization, Other)
  Sender: FDA-Public Use
  Company Number: US-BAYER-2013-056500

PATIENT
  Age: 28 Year
  Sex: Female
  Weight: 84.81 kg

DRUGS (7)
  1. YAZ [Suspect]
  2. YASMIN [Suspect]
  3. BEYAZ [Suspect]
  4. TYLENOL #3 [Concomitant]
  5. HCG [Concomitant]
     Dosage: UNK
     Dates: start: 20110804
  6. IBUPROFEN [Concomitant]
     Dosage: 800 MG, UNK
     Dates: start: 20110804
  7. PLAVIX [Concomitant]

REACTIONS (4)
  - Pulmonary embolism [None]
  - Deep vein thrombosis [None]
  - Cerebral artery embolism [None]
  - Cerebrovascular accident [None]
